FAERS Safety Report 4723538-6 (Version None)
Quarter: 2005Q3

REPORT INFORMATION
  Report Type: 
  Country: None (occurrence: None)
  Receive Date: 20050720
  Receipt Date: 20050720
  Transmission Date: 20060218
  Serious: Yes (Hospitalization)
  Sender: FDA-Public Use
  Company Number: None

PATIENT
  Age: 63 Year
  Sex: Male
  Weight: 68.4932 kg

DRUGS (12)
  1. AMIODARONE [Suspect]
     Indication: ATRIAL FIBRILLATION
     Dosage: 400 MG BID
     Dates: start: 20041101
  2. APAP TAB [Concomitant]
  3. ASPIRIN [Concomitant]
  4. BENADRYL [Concomitant]
  5. DOCUSATE [Concomitant]
  6. LISINOPRIL [Concomitant]
  7. METOPROLOL [Concomitant]
  8. MORPHINE SULFATE [Concomitant]
  9. OMEPRAZOLE [Concomitant]
  10. PROMETHAZINE [Concomitant]
  11. QUETIAPINE [Concomitant]
  12. SERTRALINE HCL [Concomitant]

REACTIONS (2)
  - NAUSEA [None]
  - VOMITING [None]
